FAERS Safety Report 9548184 (Version 1)
Quarter: 2013Q2

REPORT INFORMATION
  Report Type: Spontaneous
  Country: US (occurrence: None)
  Receive Date: 20130628
  Receipt Date: 20130628
  Transmission Date: 20140414
  Serious: Yes (Other)
  Sender: FDA-Public Use
  Company Number: 351497

PATIENT
  Age: 61 Year
  Sex: Female
  Weight: 108 kg

DRUGS (1)
  1. VANCOMYCIN HYDROCHLORIDE [Suspect]
     Indication: PNEUMONIA
     Dosage: 1500 MG Q 12 HOURS, INTRAVENOUS
     Route: 042
     Dates: start: 20090803

REACTIONS (1)
  - Renal failure [None]
